FAERS Safety Report 13445207 (Version 2)
Quarter: 2017Q2

REPORT INFORMATION
  Report Type: Spontaneous
  Country: JP (occurrence: JP)
  Receive Date: 20170414
  Receipt Date: 20170516
  Transmission Date: 20170830
  Serious: Yes (Life-Threatening)
  Sender: FDA-Public Use
  Company Number: JP-GE HEALTHCARE LIFE SCIENCES-VISP-PR-1702S-0068

PATIENT

DRUGS (14)
  1. NESINA [Concomitant]
     Active Substance: ALOGLIPTIN BENZOATE
     Dosage: UNK
     Route: 048
     Dates: end: 20170125
  2. HORNEL [Concomitant]
     Dosage: UNK
     Route: 048
     Dates: end: 20170125
  3. EPINASTINE. [Concomitant]
     Active Substance: EPINASTINE HYDROCHLORIDE
     Dosage: UNK
     Route: 048
     Dates: start: 20170116, end: 20170120
  4. VANCOMYCIN [Concomitant]
     Active Substance: VANCOMYCIN
     Dosage: UNK
     Dates: start: 20170106, end: 20170125
  5. VISIPAQUE [Suspect]
     Active Substance: IODIXANOL
     Indication: PERIPHERAL ISCHAEMIA
     Dosage: UNK UNK, SINGLE
     Route: 040
     Dates: start: 20170120, end: 20170120
  6. BAYASPIRIN [Concomitant]
     Active Substance: ASPIRIN
     Dosage: UNK
     Route: 048
     Dates: end: 20170125
  7. TRAMCET [Concomitant]
     Active Substance: ACETAMINOPHEN\TRAMADOL
     Dosage: UNK
     Route: 048
     Dates: start: 20170109, end: 20170114
  8. ALPROSTADIL. [Concomitant]
     Active Substance: ALPROSTADIL
     Dosage: UNK
     Dates: start: 20170120, end: 20170123
  9. PLAVIX [Concomitant]
     Active Substance: CLOPIDOGREL BISULFATE
     Dosage: UNK
     Route: 048
     Dates: end: 20170125
  10. NOVASTAN [Concomitant]
     Active Substance: ARGATROBAN
     Dosage: UNK
     Dates: start: 20170120, end: 20170123
  11. XYLOCAINE [Concomitant]
     Active Substance: LIDOCAINE HYDROCHLORIDE
  12. BASEN                              /01290601/ [Concomitant]
     Active Substance: VOGLIBOSE
     Dosage: UNK
     Route: 048
     Dates: end: 20170125
  13. MEROPENEM. [Concomitant]
     Active Substance: MEROPENEM
     Dosage: UNK
     Dates: start: 20170106, end: 20170120
  14. NESP [Concomitant]
     Active Substance: DARBEPOETIN ALFA
     Dosage: UNK

REACTIONS (1)
  - Anaphylactic shock [Recovered/Resolved]

NARRATIVE: CASE EVENT DATE: 20170121
